FAERS Safety Report 5578556-5 (Version None)
Quarter: 2007Q4

REPORT INFORMATION
  Report Type: 
  Country: None (occurrence: None)
  Receive Date: 20071227
  Receipt Date: 20071212
  Transmission Date: 20080405
  Serious: Yes (Hospitalization)
  Sender: FDA-Public Use
  Company Number: 430023M07DEU

PATIENT

DRUGS (1)
  1. NOVANTRONE [Suspect]

REACTIONS (1)
  - CARDIAC DISORDER [None]
